FAERS Safety Report 4602491-X (Version None)
Quarter: 2005Q1

REPORT INFORMATION
  Report Type: 
  Country: None (occurrence: None)
  Receive Date: 20050307
  Receipt Date: 20050202
  Transmission Date: 20050727
  Serious: Yes (Death, Hospitalization)
  Sender: FDA-Public Use
  Company Number: 10164

PATIENT
  Age: 74 Year
  Sex: Male
  Weight: 60.782 kg

DRUGS (6)
  1. CYTARABINE [Suspect]
     Indication: ACUTE MYELOID LEUKAEMIA
     Dosage: 100 MG/M2 FREQ
     Dates: start: 20040916
  2. DAUNORUBICIN HCL [Suspect]
     Indication: ACUTE MYELOID LEUKAEMIA
     Dosage: 45 MG/M2 FREQ
     Dates: start: 20040916
  3. CIPROFLOXACIN [Concomitant]
  4. FLUCONAZOLE [Concomitant]
  5. GRANULOCYTE-COLONY-STIMULATING FACTOR [Concomitant]
  6. PLACEBO [Suspect]
     Indication: ACUTE MYELOID LEUKAEMIA
     Dosage: 550 MG

REACTIONS (11)
  - ANOREXIA [None]
  - BACTERAEMIA [None]
  - CAECITIS [None]
  - CATHETER RELATED INFECTION [None]
  - COLITIS [None]
  - HYPERKALAEMIA [None]
  - LOBAR PNEUMONIA [None]
  - LUNG INFILTRATION [None]
  - PNEUMONITIS [None]
  - RENAL FAILURE ACUTE [None]
  - SEPSIS [None]
